FAERS Safety Report 8574239-8 (Version None)
Quarter: 2012Q3

REPORT INFORMATION
  Report Type: 
  Country: None (occurrence: None)
  Receive Date: 20120806
  Receipt Date: 20120725
  Transmission Date: 20120928
  Serious: Yes (Hospitalization)
  Sender: FDA-Public Use
  Company Number: ES-JNJFOC-20120800123

PATIENT
  Age: 5 Year
  Sex: Male

DRUGS (3)
  1. RISPERIDONE [Suspect]
     Indication: ABNORMAL BEHAVIOUR
     Dosage: DATES UNKNOWN BUT REPORTED AS TWO MONTHS AGO
     Route: 065
  2. CLOPERASTINE [Interacting]
     Indication: COUGH
     Route: 048
  3. IBUPROFEN [Concomitant]
     Indication: COUGH
     Route: 065

REACTIONS (2)
  - DRUG INTERACTION [None]
  - OCULOGYRIC CRISIS [None]
